FAERS Safety Report 9786524 (Version 1)
Quarter: 2013Q4

REPORT INFORMATION
  Report Type: Spontaneous
  Country: FR (occurrence: FR)
  Receive Date: 20131227
  Receipt Date: 20131227
  Transmission Date: 20140711
  Serious: Yes (Hospitalization)
  Sender: FDA-Public Use
  Company Number: FR-B.I. PHARMACEUTICALS,INC./RIDGEFIELD-2013-BI-43486FF

PATIENT
  Age: 78 Year
  Sex: Male

DRUGS (4)
  1. MECIR [Suspect]
     Indication: PROSTATIC ADENOMA
     Dosage: 0.4 MG
     Route: 048
     Dates: start: 20131122, end: 20131125
  2. IXPRIM [Suspect]
     Indication: BACK PAIN
     Dosage: 75 MG
     Route: 048
     Dates: start: 20131118, end: 20131125
  3. BIPROFENID ER [Suspect]
     Indication: BACK PAIN
     Dosage: 100 MG
     Route: 048
     Dates: start: 20131118, end: 20131125
  4. LYRICA [Suspect]
     Indication: BACK PAIN
     Dosage: 150 MG
     Route: 048
     Dates: start: 20131122, end: 20131125

REACTIONS (2)
  - Confusional state [Recovered/Resolved]
  - Diarrhoea [Recovered/Resolved]
